FAERS Safety Report 5413415-X (Version None)
Quarter: 2007Q3

REPORT INFORMATION
  Report Type: 
  Country: None (occurrence: None)
  Receive Date: 20070810
  Receipt Date: 20070726
  Transmission Date: 20080115
  Serious: Yes (Death)
  Sender: FDA-Public Use
  Company Number: PHBS2007JP12503

PATIENT
  Age: 75 Year
  Sex: Female
  Weight: 39.0093 kg

DRUGS (6)
  1. VISUDYNE [Suspect]
     Indication: MACULAR DEGENERATION
     Dosage: 4.2 MG DAILY IV
     Route: 042
     Dates: start: 20070608, end: 20070608
  2. ASPIRIN [Concomitant]
  3. MEXITIL [Concomitant]
  4. CLARITHROMYCIN [Concomitant]
  5. DIGOSIN [Concomitant]
  6. LANSOPRAZOLE [Concomitant]

REACTIONS (2)
  - CONDITION AGGRAVATED [None]
  - RESPIRATORY FAILURE [None]
